FAERS Safety Report 9827119 (Version 1)
Quarter: 2014Q1

REPORT INFORMATION
  Report Type: Spontaneous
  Country: JP (occurrence: JP)
  Receive Date: 20140117
  Receipt Date: 20140117
  Transmission Date: 20141002
  Serious: Yes (Other)
  Sender: FDA-Public Use
  Company Number: JP-ROXANE LABORATORIES, INC.-2014-RO-00047RO

PATIENT
  Age: 77 Year
  Sex: Female

DRUGS (7)
  1. DONEPEZIL HYDROCHLORIDE [Suspect]
     Indication: DEMENTIA ALZHEIMER^S TYPE
     Dosage: 3 MG
  2. DONEPEZIL HYDROCHLORIDE [Suspect]
     Dosage: 5 MG
  3. DONEPEZIL HYDROCHLORIDE [Suspect]
     Dosage: 10 MG
  4. MICARDIS [Suspect]
     Dosage: 40 MG
     Route: 048
  5. MEMANTINE [Suspect]
     Indication: DEMENTIA ALZHEIMER^S TYPE
     Dosage: 5 MG
  6. NIFEDIPINE [Suspect]
     Dosage: 40 MG
  7. PRAVASTATIN SODIUM [Suspect]
     Dosage: 5 MG

REACTIONS (2)
  - Electrocardiogram PR prolongation [Unknown]
  - Bradycardia [Unknown]
